FAERS Safety Report 5279017-3 (Version None)
Quarter: 2007Q1

REPORT INFORMATION
  Report Type: 
  Country: None (occurrence: None)
  Receive Date: 20070328
  Receipt Date: 20070111
  Transmission Date: 20070707
  Serious: No
  Sender: FDA-Public Use
  Company Number: US-AMGEN-US206522

PATIENT
  Age: 54 Year
  Sex: Female
  Weight: 13.6 kg

DRUGS (3)
  1. NEULASTA [Suspect]
     Indication: DRUG USE FOR UNKNOWN INDICATION
     Route: 065
     Dates: start: 20070104
  2. CYTOXAN [Concomitant]
     Route: 065
  3. CYTOXAN [Concomitant]
     Route: 065

REACTIONS (1)
  - NEUTROPHIL COUNT DECREASED [None]
